FAERS Safety Report 19648298 (Version 1)
Quarter: 2021Q3

REPORT INFORMATION
  Report Type: Spontaneous
  Country: GB (occurrence: GB)
  Receive Date: 20210803
  Receipt Date: 20210803
  Transmission Date: 20211014
  Serious: Yes (Life-Threatening, Hospitalization, Other)
  Sender: FDA-Public Use
  Company Number: GB-IPCA LABORATORIES LIMITED-IPC-2021-GB-001416

PATIENT
  Age: 58 Year
  Sex: Female

DRUGS (4)
  1. GLICLAZIDE [Concomitant]
     Active Substance: GLICLAZIDE
     Indication: TYPE 2 DIABETES MELLITUS
     Dosage: UNK
     Route: 065
  2. METFORMIN [Suspect]
     Active Substance: METFORMIN HYDROCHLORIDE
     Indication: TYPE 2 DIABETES MELLITUS
     Dosage: 1 GRAM, BID
     Route: 065
  3. DICLOFENAC [Concomitant]
     Active Substance: DICLOFENAC
     Indication: ABDOMINAL PAIN
     Dosage: UNK
     Route: 065
  4. RAMIPRIL. [Concomitant]
     Active Substance: RAMIPRIL
     Indication: HYPERTENSION
     Dosage: UNK
     Route: 065

REACTIONS (15)
  - Sepsis [Recovered/Resolved]
  - Bradycardia [Recovered/Resolved]
  - Aggression [Recovered/Resolved]
  - Cardiac arrest [Recovered/Resolved]
  - Hypovolaemic shock [Recovered/Resolved]
  - Hypotension [Recovered/Resolved]
  - Hypoxia [Recovered/Resolved]
  - Hypothermia [Recovered/Resolved]
  - Abdominal pain [Recovered/Resolved]
  - Agitation [Recovered/Resolved]
  - Multiple organ dysfunction syndrome [Recovered/Resolved]
  - Lactic acidosis [Recovered/Resolved]
  - Colitis [Recovered/Resolved]
  - Malaise [Recovered/Resolved]
  - Acute kidney injury [Recovered/Resolved]
